FAERS Safety Report 6276648-9 (Version None)
Quarter: 2009Q3

REPORT INFORMATION
  Report Type: 
  Country: None (occurrence: None)
  Receive Date: 20090722
  Receipt Date: 20080819
  Transmission Date: 20100115
  Serious: No
  Sender: FDA-Public Use
  Company Number: US-BRISTOL-MYERS SQUIBB COMPANY-14247316

PATIENT
  Age: 73 Year
  Sex: Male
  Weight: 109 kg

DRUGS (9)
  1. COUMADIN [Suspect]
     Indication: ATRIAL FIBRILLATION
     Dosage: LATER DOSE DECREASED TO 4MG
  2. BACTRIM [Suspect]
  3. LOPID [Concomitant]
  4. ASPIRIN [Concomitant]
  5. FOSINOPRIL SODIUM [Concomitant]
  6. PRAVASTATIN [Concomitant]
  7. NADOLOL [Concomitant]
  8. ALLOPURINOL [Concomitant]
  9. CARTIA XT [Concomitant]

REACTIONS (4)
  - GENITAL BURNING SENSATION [None]
  - INTERNATIONAL NORMALISED RATIO INCREASED [None]
  - PRURITUS GENITAL [None]
  - RASH MACULAR [None]
